FAERS Safety Report 6173546-6 (Version None)
Quarter: 2009Q2

REPORT INFORMATION
  Report Type: 
  Country: None (occurrence: None)
  Receive Date: 20090430
  Receipt Date: 20090423
  Transmission Date: 20091009
  Serious: Yes (Hospitalization)
  Sender: FDA-Public Use
  Company Number: B0571366A

PATIENT
  Sex: Female

DRUGS (23)
  1. FORTUM [Suspect]
     Indication: ABSCESS
     Dosage: 1G THREE TIMES PER DAY
     Route: 042
     Dates: start: 20081028, end: 20081110
  2. VANCOMYCINE [Suspect]
     Indication: ABSCESS
     Route: 042
     Dates: start: 20081028, end: 20081106
  3. INIPOMP [Suspect]
     Indication: DRUG USE FOR UNKNOWN INDICATION
     Dosage: 20MG PER DAY
     Route: 048
     Dates: start: 20081101, end: 20081107
  4. BI-TILDIEM 90 MG [Suspect]
     Indication: DRUG USE FOR UNKNOWN INDICATION
     Route: 048
     Dates: end: 20081109
  5. PYOSTACINE [Suspect]
     Indication: ABSCESS
     Dosage: 3000MG PER DAY
     Route: 048
     Dates: start: 20081018, end: 20081028
  6. PENICILLIN G [Suspect]
     Indication: ABSCESS
     Dosage: 40IU6 PER DAY
     Route: 042
     Dates: start: 20081018, end: 20081028
  7. AMIKLIN [Suspect]
     Indication: ABSCESS
     Dosage: 1.5G PER DAY
     Route: 042
     Dates: start: 20081028, end: 20081030
  8. ATARAX [Suspect]
     Indication: ANXIETY
     Dosage: 25MG PER DAY
     Route: 048
     Dates: end: 20081112
  9. DIANTALVIC [Suspect]
     Indication: PAIN
     Dosage: 6UNIT PER DAY
     Route: 048
     Dates: start: 20081023, end: 20081029
  10. LEVOTHYROX [Concomitant]
     Route: 065
  11. COAPROVEL [Concomitant]
     Route: 065
  12. PREVISCAN [Concomitant]
     Route: 065
     Dates: end: 20081020
  13. LANTUS [Concomitant]
     Route: 065
  14. HUMALOG [Concomitant]
     Route: 065
     Dates: end: 20081020
  15. ZOLPIDEM TARTRATE [Concomitant]
     Route: 065
  16. HEMIGOXINE [Concomitant]
     Route: 065
     Dates: start: 20081021
  17. LOVENOX [Concomitant]
     Route: 065
     Dates: start: 20081021
  18. ISOPTIN [Concomitant]
     Route: 065
     Dates: start: 20081026
  19. ZYRTEC [Concomitant]
     Route: 065
     Dates: start: 20081021, end: 20081116
  20. ACTISKENAN [Concomitant]
     Route: 065
     Dates: start: 20081023
  21. ACUPAN [Concomitant]
     Route: 065
     Dates: start: 20081101
  22. DOLIPRANE [Concomitant]
     Route: 065
     Dates: start: 20081019, end: 20081021
  23. ACETAMINOPHEN [Concomitant]
     Route: 065
     Dates: start: 20081106, end: 20081108

REACTIONS (6)
  - ACUTE GENERALISED EXANTHEMATOUS PUSTULOSIS [None]
  - EOSINOPHILIA [None]
  - LEUKOCYTOSIS [None]
  - PRURITUS [None]
  - RASH MACULO-PAPULAR [None]
  - RASH PUSTULAR [None]
